FAERS Safety Report 7594653-7 (Version None)
Quarter: 2011Q3

REPORT INFORMATION
  Report Type: 
  Country: None (occurrence: None)
  Receive Date: 20110707
  Receipt Date: 20110628
  Transmission Date: 20111222
  Serious: Yes (Hospitalization)
  Sender: FDA-Public Use
  Company Number: US-US-EMD SERONO, INC.-7068200

PATIENT
  Sex: Female

DRUGS (7)
  1. REBIF [Suspect]
     Route: 058
  2. NAPROXEN (ALEVE) [Concomitant]
     Indication: PREMEDICATION
  3. CYMBALTA [Concomitant]
  4. NEURONTIN [Concomitant]
  5. REBIF [Suspect]
     Indication: PRODUCT USED FOR UNKNOWN INDICATION
     Route: 058
     Dates: start: 20110523
  6. INSULIN [Concomitant]
  7. BACLOFEN [Concomitant]

REACTIONS (4)
  - UNEVALUABLE EVENT [None]
  - CENTRAL NERVOUS SYSTEM LESION [None]
  - CONTUSION [None]
  - PYREXIA [None]
